FAERS Safety Report 9523493 (Version 1)
Quarter: 2013Q3

REPORT INFORMATION
  Report Type: Spontaneous
  Country: US (occurrence: US)
  Receive Date: 20130913
  Receipt Date: 20130913
  Transmission Date: 20140515
  Serious: Yes (Other)
  Sender: FDA-Public Use
  Company Number: US-GLAXOSMITHKLINE-A1041397A

PATIENT
  Age: 65 Year
  Sex: Male

DRUGS (2)
  1. VENTOLIN HFA [Suspect]
     Indication: RESPIRATORY DISORDER
     Route: 055
     Dates: start: 201210
  2. ADVAIR [Suspect]
     Indication: RESPIRATORY DISORDER
     Dates: start: 201210

REACTIONS (3)
  - Myocardial infarction [Unknown]
  - Stent placement [Unknown]
  - Surgery [Unknown]
